FAERS Safety Report 9832238 (Version 2)
Quarter: 2014Q1

REPORT INFORMATION
  Report Type: Report from Study
  Country: US (occurrence: US)
  Receive Date: 20140121
  Receipt Date: 20140306
  Transmission Date: 20141002
  Serious: Yes (Other)
  Sender: FDA-Public Use
  Company Number: PHEH2014US001245

PATIENT
  Sex: Male

DRUGS (2)
  1. DIOVAN [Suspect]
     Dosage: 320 MG, QD
  2. CLONIDINE [Concomitant]
     Dosage: 0.1 MG, QD

REACTIONS (2)
  - Cerebrovascular accident [Unknown]
  - Cognitive disorder [Unknown]
